FAERS Safety Report 6396730-5 (Version None)
Quarter: 2009Q4

REPORT INFORMATION
  Report Type: 
  Country: None (occurrence: None)
  Receive Date: 20091012
  Receipt Date: 20090629
  Transmission Date: 20100525
  Serious: No
  Sender: FDA-Public Use
  Company Number: US-ASTRAZENECA-2009UW10583

PATIENT
  Sex: Male
  Weight: 113.4 kg

DRUGS (7)
  1. SYMBICORT [Suspect]
     Dosage: 80/4.5, 2 PUFFS
     Route: 055
     Dates: start: 20080101
  2. PREDNISONE [Concomitant]
  3. FLOMAX [Concomitant]
  4. CELEBREX [Concomitant]
  5. NEXIUM [Concomitant]
  6. ALBUTEROL [Concomitant]
  7. BETABATOL [Concomitant]

REACTIONS (1)
  - RHINORRHOEA [None]
